FAERS Safety Report 24322610 (Version 1)
Quarter: 2024Q3

REPORT INFORMATION
  Report Type: Spontaneous
  Country: CN (occurrence: CN)
  Receive Date: 20240916
  Receipt Date: 20240916
  Transmission Date: 20241016
  Serious: Yes (Death, Hospitalization)
  Sender: STRIDES
  Company Number: CN-STRIDES ARCOLAB LIMITED-2024SP011652

PATIENT
  Age: 52 Year
  Sex: Female

DRUGS (10)
  1. PREDNISOLONE [Suspect]
     Active Substance: PREDNISOLONE
     Indication: Intestinal T-cell lymphoma stage IV
     Dosage: UNK, CYCLICAL (3 CYCLES)
     Route: 065
  2. PREDNISOLONE [Suspect]
     Active Substance: PREDNISOLONE
     Dosage: UNK, CYCLICAL (2 CYCLES)
     Route: 065
     Dates: start: 20230523
  3. ETOPOSIDE [Suspect]
     Active Substance: ETOPOSIDE
     Indication: Intestinal T-cell lymphoma stage IV
     Dosage: UNK, CYCLICAL (2 CYCLES)
     Route: 065
     Dates: start: 20230523
  4. DOXORUBICIN [Suspect]
     Active Substance: DOXORUBICIN
     Indication: Intestinal T-cell lymphoma stage IV
     Dosage: UNK, CYCLICAL (3 CYCLES)
     Route: 065
  5. DOXORUBICIN [Suspect]
     Active Substance: DOXORUBICIN
     Dosage: UNK, CYCLICAL (2 CYCLES)
     Route: 065
     Dates: start: 20230523
  6. TUCIDINOSTAT [Suspect]
     Active Substance: TUCIDINOSTAT
     Indication: Intestinal T-cell lymphoma stage IV
     Dosage: UNK, CYCLICAL (2 CYCLES)
     Route: 065
     Dates: start: 20230523
  7. CYCLOPHOSPHAMIDE [Suspect]
     Active Substance: CYCLOPHOSPHAMIDE
     Indication: Intestinal T-cell lymphoma stage IV
     Dosage: UNK, CYCLICAL (3 CYCLES)
     Route: 065
  8. CYCLOPHOSPHAMIDE [Suspect]
     Active Substance: CYCLOPHOSPHAMIDE
     Dosage: UNK, CYCLICAL (2 CYCLES)
     Route: 065
     Dates: start: 20230523
  9. VINCRISTINE [Suspect]
     Active Substance: VINCRISTINE
     Indication: Intestinal T-cell lymphoma stage IV
     Dosage: UNK, CYCLICAL (3 CYCLES)
     Route: 065
  10. VINCRISTINE [Suspect]
     Active Substance: VINCRISTINE
     Dosage: UNK, CYCLICAL (2 CYCLES)
     Route: 065
     Dates: start: 20230523

REACTIONS (2)
  - Infection [Fatal]
  - Drug ineffective for unapproved indication [Fatal]

NARRATIVE: CASE EVENT DATE: 20230101
